FAERS Safety Report 6582586-4 (Version None)
Quarter: 2010Q1

REPORT INFORMATION
  Report Type: 
  Country: None (occurrence: None)
  Receive Date: 20100212
  Receipt Date: 20100212
  Transmission Date: 20100710
  Serious: Yes (Hospitalization)
  Sender: FDA-Public Use
  Company Number: None

PATIENT
  Age: 63 Year
  Sex: Male

DRUGS (1)
  1. ETOPOSIDE [Suspect]
     Indication: SMALL CELL LUNG CANCER STAGE UNSPECIFIED
     Dosage: 190 MG OTHER IV
     Route: 042
     Dates: start: 20091103, end: 20091103

REACTIONS (4)
  - ANAEMIA [None]
  - CHEST DISCOMFORT [None]
  - CHEST PAIN [None]
  - FATIGUE [None]
